FAERS Safety Report 5635257-2 (Version None)
Quarter: 2008Q1

REPORT INFORMATION
  Report Type: 
  Country: None (occurrence: None)
  Receive Date: 20080222
  Receipt Date: 20080222
  Transmission Date: 20080703
  Serious: Yes (Hospitalization)
  Sender: FDA-Public Use
  Company Number: BR-BOEHRINGER INGELHEIM GMBH, GERMANY-2008-DE-01133GD

PATIENT
  Age: 77 Year
  Sex: Male

DRUGS (3)
  1. SERTRALINE [Suspect]
     Indication: DEPRESSION
     Dosage: PROGRESSIVE INCREASE FROM 50 MG TO 100 MG
  2. CAPTOPRIL [Concomitant]
     Indication: HYPERTENSION
  3. NPH INSULIN [Concomitant]
     Indication: DIABETES MELLITUS

REACTIONS (3)
  - HYPERKALAEMIA [None]
  - HYPONATRAEMIA [None]
  - INAPPROPRIATE ANTIDIURETIC HORMONE SECRETION [None]
